FAERS Safety Report 14737767 (Version 1)
Quarter: 2018Q2

REPORT INFORMATION
  Report Type: Spontaneous
  Country: US (occurrence: US)
  Receive Date: 20180409
  Receipt Date: 20180409
  Transmission Date: 20180711
  Serious: No
  Sender: FDA-Public Use
  Company Number: US-BAYER-2018-059983

PATIENT
  Age: 5 Year
  Sex: Male
  Weight: 16 kg

DRUGS (1)
  1. MIRALAX [Suspect]
     Active Substance: POLYETHYLENE GLYCOL 3350
     Indication: GASTROINTESTINAL DISORDER
     Dosage: 1/2 DOSE EVERY OTHER DAY DOSE
     Route: 048
     Dates: start: 201801

REACTIONS (3)
  - Drug administered to patient of inappropriate age [Unknown]
  - Product physical issue [None]
  - Product prescribing issue [Unknown]

NARRATIVE: CASE EVENT DATE: 201801
